FAERS Safety Report 25362756 (Version 1)
Quarter: 2025Q2

REPORT INFORMATION
  Report Type: Spontaneous
  Country: AU (occurrence: AU)
  Receive Date: 20250527
  Receipt Date: 20250527
  Transmission Date: 20250716
  Serious: Yes (Other)
  Sender: Harrow Health
  Company Number: AU-HARROW-HAR-2025-AU-00192

PATIENT
  Age: 53 Year
  Sex: Male

DRUGS (3)
  1. VERKAZIA [Suspect]
     Active Substance: CYCLOSPORINE
     Indication: Uveitis
     Route: 047
     Dates: start: 20231218, end: 20240511
  2. ILEVRO [Concomitant]
     Active Substance: NEPAFENAC
  3. DEXAMETHASONE [Concomitant]
     Active Substance: DEXAMETHASONE
     Indication: Uveitis
     Route: 047
     Dates: start: 202312, end: 202404

REACTIONS (5)
  - Corneal endotheliitis [Not Recovered/Not Resolved]
  - Corneal oedema [Not Recovered/Not Resolved]
  - Off label use [Unknown]
  - Overdose [Unknown]
  - Off label use [Unknown]

NARRATIVE: CASE EVENT DATE: 20231218
